FAERS Safety Report 24567770 (Version 3)
Quarter: 2024Q4

REPORT INFORMATION
  Report Type: Spontaneous
  Country: US (occurrence: US)
  Receive Date: 20241031
  Receipt Date: 20241231
  Transmission Date: 20250115
  Serious: No
  Sender: BRISTOL-MYERS SQUIBB COMPANY
  Company Number: US-BRISTOL-MYERS SQUIBB COMPANY-2024-170594

PATIENT
  Age: 67 Year
  Sex: Female

DRUGS (2)
  1. LENALIDOMIDE [Suspect]
     Active Substance: LENALIDOMIDE
     Indication: Plasma cell myeloma in remission
     Dosage: FREQUENCY: EVERY DAY FOR 7 DAYS FOLLOWED BY 7 DAYS OFF, THEN REPEAT FOR A 28 DAY CYCLE
     Route: 048
  2. LENALIDOMIDE [Suspect]
     Active Substance: LENALIDOMIDE
     Dosage: FREQUENCY: EVERY DAY FOR 7 DAYS FOLLOWED BY 7 DAYS OFF, THEN REPEAT FOR A 28 DAY CYCLE
     Route: 048

REACTIONS (5)
  - Nasopharyngitis [Recovering/Resolving]
  - Off label use [Unknown]
  - Fluid retention [Recovered/Resolved]
  - Product prescribing issue [Unknown]
  - Therapy interrupted [Unknown]
